FAERS Safety Report 7464123-5 (Version None)
Quarter: 2011Q2

REPORT INFORMATION
  Report Type: 
  Country: None (occurrence: None)
  Receive Date: 20110506
  Receipt Date: 20101019
  Transmission Date: 20111010
  Serious: No
  Sender: FDA-Public Use
  Company Number: US-AMGEN-USASP2010000853

PATIENT
  Sex: Female

DRUGS (2)
  1. ENBREL [Suspect]
     Indication: PSORIATIC ARTHROPATHY
     Dosage: 50 MG, 2 TIMES/WK
     Dates: start: 20100930
  2. ENBREL [Suspect]
     Indication: PSORIASIS

REACTIONS (4)
  - EXCORIATION [None]
  - CONTUSION [None]
  - HAEMORRHAGE [None]
  - FALL [None]
